FAERS Safety Report 14222395 (Version 2)
Quarter: 2017Q4

REPORT INFORMATION
  Report Type: Spontaneous
  Country: FR (occurrence: FR)
  Receive Date: 20171124
  Receipt Date: 20171212
  Transmission Date: 20180321
  Serious: Yes (Hospitalization, Other)
  Sender: FDA-Public Use
  Company Number: FR-ABBVIE-17K-056-2173556-00

PATIENT
  Age: 26 Year
  Sex: Female

DRUGS (7)
  1. HUMIRA [Suspect]
     Active Substance: ADALIMUMAB
     Indication: CROHN^S DISEASE
     Route: 058
     Dates: start: 2015
  2. HUMIRA [Suspect]
     Active Substance: ADALIMUMAB
     Dosage: LOADING DOSE
     Route: 058
     Dates: start: 20171108, end: 20171108
  3. HUMIRA [Suspect]
     Active Substance: ADALIMUMAB
     Route: 058
     Dates: start: 20171118, end: 20171118
  4. HUMIRA [Suspect]
     Active Substance: ADALIMUMAB
     Route: 058
     Dates: start: 20171206
  5. HUMIRA [Suspect]
     Active Substance: ADALIMUMAB
     Dosage: LOADING DOSE
     Route: 058
     Dates: start: 20171026, end: 20171026
  6. HUMIRA [Suspect]
     Active Substance: ADALIMUMAB
     Route: 058
     Dates: start: 20171129, end: 20171129
  7. MODULEN IBD [Suspect]
     Active Substance: CARBOHYDRATES\FATTY ACIDS\MINERALS\PROTEIN\VITAMINS
     Indication: PRODUCT USED FOR UNKNOWN INDICATION
     Route: 065

REACTIONS (14)
  - Hyperhidrosis [Unknown]
  - Crohn^s disease [Unknown]
  - Adnexa uteri mass [Unknown]
  - Live birth [Unknown]
  - Impaired healing [Unknown]
  - Enteritis [Unknown]
  - Malaise [Unknown]
  - Exposure during pregnancy [Unknown]
  - Chills [Unknown]
  - Nausea [Recovered/Resolved]
  - Diarrhoea [Unknown]
  - Abdominal pain lower [Unknown]
  - Subcutaneous abscess [Unknown]
  - Vomiting [Recovering/Resolving]

NARRATIVE: CASE EVENT DATE: 2017
